FAERS Safety Report 10079818 (Version 2)
Quarter: 2014Q2

REPORT INFORMATION
  Report Type: Report from Study
  Country: NL (occurrence: ES)
  Receive Date: 20140415
  Receipt Date: 20140415
  Transmission Date: 20141212
  Serious: Yes (Hospitalization)
  Sender: FDA-Public Use
  Company Number: NL-BAXTER-2014BAX014369

PATIENT
  Sex: Male

DRUGS (3)
  1. KIOVIG 100 MG/ML OPLOSSING VOOR INFUSIE (20 G/200 ML) [Suspect]
     Indication: POLYNEUROPATHY
     Route: 065
     Dates: start: 20140218, end: 20140218
  2. KIOVIG 100 MG/ML OPLOSSING VOOR INFUSIE (20 G/200 ML) [Suspect]
     Indication: OFF LABEL USE
     Route: 065
     Dates: start: 20140317, end: 20140317
  3. KIOVIG 100 MG/ML OPLOSSING VOOR INFUSIE (20 G/200 ML) [Suspect]
     Route: 065

REACTIONS (1)
  - Bacterial infection [Not Recovered/Not Resolved]
